FAERS Safety Report 19913019 (Version 2)
Quarter: 2021Q4

REPORT INFORMATION
  Report Type: Spontaneous
  Country: KR (occurrence: KR)
  Receive Date: 20211004
  Receipt Date: 20211006
  Transmission Date: 20220303
  Serious: Yes (Hospitalization, Other)
  Sender: FDA-Public Use
  Company Number: KR-GLAXOSMITHKLINE-KR2021APC203510

PATIENT
  Age: 60 Year
  Sex: Male
  Weight: 56.7 kg

DRUGS (12)
  1. KIVEXA [Suspect]
     Active Substance: ABACAVIR SULFATE\LAMIVUDINE
     Indication: HIV infection
     Dosage: 1 MG
     Route: 048
     Dates: start: 20140113
  2. ACETYLCYSTEINE [Concomitant]
     Active Substance: ACETYLCYSTEINE
     Indication: Nasopharyngitis
     Dosage: UNK
     Route: 048
     Dates: start: 20160608, end: 20160622
  3. CLONAZEPAM [Concomitant]
     Active Substance: CLONAZEPAM
     Indication: Prophylaxis
     Dosage: UNK
     Route: 048
     Dates: start: 20150811
  4. DARUNAVIR [Concomitant]
     Active Substance: DARUNAVIR
     Indication: HIV infection
     Dosage: UNK
     Route: 048
     Dates: start: 20140113
  5. EPERISONE [Concomitant]
     Active Substance: EPERISONE
     Indication: Prophylaxis
     Dosage: UNK
     Route: 048
     Dates: start: 20160115
  6. GABAPENTIN [Concomitant]
     Active Substance: GABAPENTIN
     Indication: Prophylaxis
     Dosage: UNK
     Route: 048
     Dates: start: 20150908
  7. ACETAMINOPHEN [Concomitant]
     Active Substance: ACETAMINOPHEN
     Indication: Nasopharyngitis
     Dosage: UNK
     Route: 048
     Dates: start: 20160608, end: 20160622
  8. RANITIDINE [Concomitant]
     Active Substance: RANITIDINE
     Indication: Prophylaxis
     Dosage: UNK
     Route: 048
     Dates: start: 20150917
  9. RITONAVIR [Concomitant]
     Active Substance: RITONAVIR
     Indication: HIV infection
     Dosage: UNK
     Route: 048
     Dates: start: 20140113
  10. DIETARY SUPPLEMENT\HERBALS\MILK THISTLE [Concomitant]
     Active Substance: DIETARY SUPPLEMENT\HERBALS\MILK THISTLE
     Indication: Chronic hepatitis
     Dosage: UNK
     Route: 048
     Dates: start: 20160415
  11. DIETARY SUPPLEMENT\HERBALS\MILK THISTLE [Concomitant]
     Active Substance: DIETARY SUPPLEMENT\HERBALS\MILK THISTLE
     Indication: Prophylaxis
  12. URSODIOL [Concomitant]
     Active Substance: URSODIOL
     Indication: Hepatitis viral
     Dosage: UNK
     Route: 048
     Dates: start: 20151014

REACTIONS (6)
  - Paraesthesia [Recovered/Resolved]
  - Enteritis [Recovered/Resolved]
  - Mouth ulceration [Recovered/Resolved]
  - Hepatitis [Not Recovered/Not Resolved]
  - Pharyngitis [Recovered/Resolved]
  - Muscle spasms [Recovered/Resolved]

NARRATIVE: CASE EVENT DATE: 20150918
